FAERS Safety Report 17974516 (Version 3)
Quarter: 2022Q3

REPORT INFORMATION
  Report Type: Spontaneous
  Country: US (occurrence: US)
  Receive Date: 20200702
  Receipt Date: 20220727
  Transmission Date: 20221027
  Serious: No
  Sender: FDA-Public Use
  Company Number: US-PFIZER INC-2019284795

PATIENT
  Age: 60 Year
  Sex: Male

DRUGS (1)
  1. PRISTIQ EXTENDED-RELEASE [Suspect]
     Active Substance: DESVENLAFAXINE SUCCINATE
     Indication: Nervous system disorder
     Dosage: 50 MG, DAILY

REACTIONS (6)
  - Anxiety [Unknown]
  - Depression [Unknown]
  - Impaired work ability [Unknown]
  - Panic reaction [Unknown]
  - Off label use [Unknown]
  - Drug effective for unapproved indication [Unknown]
